FAERS Safety Report 19270560 (Version 3)
Quarter: 2021Q3

REPORT INFORMATION
  Report Type: Report from Study
  Country: DE (occurrence: DE)
  Receive Date: 20210518
  Receipt Date: 20210726
  Transmission Date: 20211014
  Serious: No
  Sender: FDA-Public Use
  Company Number: DE-SHIRE-DE201928230

PATIENT
  Age: 84 Year
  Sex: Female
  Weight: 67 kg

DRUGS (20)
  1. PARATHYROID HORMONE [Suspect]
     Active Substance: PARATHYROID HORMONE
     Indication: HYPOPARATHYROIDISM
     Dosage: 50 MICROGRAM, 1X/DAY:QD
     Route: 058
     Dates: start: 20190821
  2. PARATHYROID HORMONE [Suspect]
     Active Substance: PARATHYROID HORMONE
     Dosage: 25 MICROGRAM, 1X/DAY:QD
     Route: 058
     Dates: start: 20190821
  3. PARATHYROID HORMONE [Suspect]
     Active Substance: PARATHYROID HORMONE
     Dosage: 25 MICROGRAM, 1X/DAY:QD
     Route: 058
     Dates: start: 20190821
  4. PARATHYROID HORMONE [Suspect]
     Active Substance: PARATHYROID HORMONE
     Dosage: 25 MICROGRAM, 1X/DAY:QD
     Route: 058
     Dates: start: 20190821
  5. DEKRISTOL [Concomitant]
     Active Substance: CHOLECALCIFEROL
     Indication: HYPOPARATHYROIDISM
     Dosage: 20000 INTERNATIONAL UNIT, 2/WEEK
     Route: 048
  6. NAPROXEN. [Concomitant]
     Active Substance: NAPROXEN
     Indication: BACK PAIN
     Dosage: UNK
     Route: 048
     Dates: start: 20190821
  7. CANDECOR [Concomitant]
     Active Substance: CANDESARTAN CILEXETIL
     Indication: HYPERTENSION
     Route: 048
  8. NOVAMINSULFON [Concomitant]
     Active Substance: METAMIZOLE
     Indication: HERPES ZOSTER
     Route: 048
  9. PARATHYROID HORMONE [Suspect]
     Active Substance: PARATHYROID HORMONE
     Dosage: 25 MICROGRAM, 1X/DAY:QD
     Route: 058
     Dates: start: 20191211
  10. L?THYROXINE [LEVOTHYROXINE] [Concomitant]
     Active Substance: LEVOTHYROXINE
     Indication: THYROIDECTOMY
     Dosage: 50 MICROGRAM, QD
     Route: 048
  11. PARATHYROID HORMONE [Suspect]
     Active Substance: PARATHYROID HORMONE
     Indication: HYPOPARATHYROIDISM
     Dosage: 50 MICROGRAM, 1X/DAY:QD
     Route: 058
     Dates: start: 20190821
  12. PARATHYROID HORMONE [Suspect]
     Active Substance: PARATHYROID HORMONE
     Dosage: 25 MICROGRAM, 1X/DAY:QD
     Route: 058
     Dates: start: 20191211
  13. ASPIRIN. [Concomitant]
     Active Substance: ASPIRIN
     Indication: MYOCARDIAL INFARCTION
     Dosage: 100 MILLIGRAM, QD
     Route: 065
  14. GABAPENTIN. [Concomitant]
     Active Substance: GABAPENTIN
     Indication: HERPES ZOSTER
     Route: 048
  15. IBUPROFEN. [Concomitant]
     Active Substance: IBUPROFEN
     Indication: HERPES ZOSTER
     Route: 048
  16. PARATHYROID HORMONE [Suspect]
     Active Substance: PARATHYROID HORMONE
     Dosage: 25 MICROGRAM, 1X/DAY:QD
     Route: 058
     Dates: start: 20191211
  17. ZOSTEX [Concomitant]
     Active Substance: BRIVUDINE
     Indication: HERPES ZOSTER
     Route: 048
  18. PARATHYROID HORMONE [Suspect]
     Active Substance: PARATHYROID HORMONE
     Indication: HYPOPARATHYROIDISM
     Dosage: 50 MICROGRAM, 1X/DAY:QD
     Route: 058
     Dates: start: 20190821
  19. PREGABALIN. [Concomitant]
     Active Substance: PREGABALIN
     Indication: HERPES ZOSTER
     Dosage: UNK MILLIGRAM
     Route: 048
  20. CALCIUM [Concomitant]
     Active Substance: CALCIUM
     Indication: HYPOPARATHYROIDISM
     Dosage: 500 MILLIGRAM, PRN
     Route: 048

REACTIONS (21)
  - Blood pressure increased [Recovered/Resolved]
  - Blood cholesterol increased [Recovered/Resolved]
  - Herpes zoster [Not Recovered/Not Resolved]
  - Product dose omission issue [Recovered/Resolved]
  - Paraesthesia [Recovered/Resolved]
  - Dizziness [Recovered/Resolved]
  - Therapy cessation [Recovered/Resolved]
  - Thyroid function test abnormal [Not Recovered/Not Resolved]
  - Joint injury [Recovered/Resolved]
  - Back pain [Recovered/Resolved]
  - Vitamin B12 deficiency [Not Recovered/Not Resolved]
  - Bone pain [Recovered/Resolved]
  - Headache [Not Recovered/Not Resolved]
  - Oedema peripheral [Recovered/Resolved]
  - Disorientation [Recovered/Resolved]
  - Blood calcium increased [Recovered/Resolved]
  - Blood calcium decreased [Recovered/Resolved]
  - Pain in extremity [Recovered/Resolved]
  - Arthralgia [Recovered/Resolved]
  - Hypocalcaemia [Not Recovered/Not Resolved]
  - Muscle spasms [Recovered/Resolved]

NARRATIVE: CASE EVENT DATE: 20190823
